FAERS Safety Report 7821975-4 (Version None)
Quarter: 2011Q4

REPORT INFORMATION
  Report Type: 
  Country: None (occurrence: None)
  Receive Date: 20111018
  Receipt Date: 20110214
  Transmission Date: 20120403
  Serious: No
  Sender: FDA-Public Use
  Company Number: US-ASTRAZENECA-2010SE40938

PATIENT
  Age: 51 Year
  Sex: Female
  Weight: 73.5 kg

DRUGS (10)
  1. SYMBICORT [Suspect]
     Dosage: ONE OR TWICE A DAY
     Route: 055
     Dates: start: 20100601
  2. ALBUTEROL [Concomitant]
     Dosage: 2 PUFFS PRN NO MORE THAN 4X DAILY
  3. TORADOL [Concomitant]
  4. BYSTOLIC [Concomitant]
  5. LAMICTAL [Concomitant]
  6. SYMBICORT [Suspect]
     Dosage: 2 PUFFS UP TO 6 TIMES A DAY
     Route: 055
     Dates: start: 20100701
  7. PLAVIX [Concomitant]
  8. SYMBICORT [Suspect]
     Indication: ASTHMA
     Dosage: 160/4.5 2 PUFFS
     Route: 055
     Dates: start: 20091101
  9. TEGRETOL [Concomitant]
  10. GOEDON [Concomitant]
     Dosage: 20 MG 1 AM 2 HS DAILY

REACTIONS (3)
  - DYSPNOEA [None]
  - CHEST DISCOMFORT [None]
  - ASTHMA [None]
